FAERS Safety Report 18098194 (Version 1)
Quarter: 2020Q3

REPORT INFORMATION
  Report Type: Spontaneous
  Country: CN (occurrence: CN)
  Receive Date: 20200731
  Receipt Date: 20200731
  Transmission Date: 20201103
  Serious: Yes (Other)
  Sender: FDA-Public Use
  Company Number: CN-ROCHE-2651465

PATIENT
  Age: 38 Year
  Sex: Female
  Weight: 70 kg

DRUGS (6)
  1. MABTHERA [Suspect]
     Active Substance: RITUXIMAB
     Indication: NON-HODGKIN^S LYMPHOMA
     Dosage: DAY1, R?CHOP REGIMEN 8 CYCLES
     Route: 065
     Dates: start: 20190111
  2. CYCLOPHOSPHAMIDE. [Concomitant]
     Active Substance: CYCLOPHOSPHAMIDE
     Indication: NON-HODGKIN^S LYMPHOMA
     Dosage: 1.2 UNIT NOT REPORTED?DAY1, R?CHOP REGIMEN 8 CYCLES
     Dates: start: 20190111
  3. PREDNISONE ACETATE [Concomitant]
     Active Substance: PREDNISONE ACETATE
     Indication: NON-HODGKIN^S LYMPHOMA
     Dosage: R?CHOP REGIMEN 8 CYCLES, DAY5
     Dates: start: 20190111
  4. EPIRUBICIN [Concomitant]
     Active Substance: EPIRUBICIN
     Indication: NON-HODGKIN^S LYMPHOMA
     Dosage: DAY1, R?CHOP REGIMEN 8 CYCLES
     Dates: start: 20190111
  5. OXALIPLATIN. [Concomitant]
     Active Substance: OXALIPLATIN
     Indication: NON-HODGKIN^S LYMPHOMA
     Dosage: DAY 1,8,15,22
  6. VINDESINE [Concomitant]
     Active Substance: VINDESINE
     Indication: NON-HODGKIN^S LYMPHOMA
     Dosage: R?CHOP REGIMEN 8 CYCLES
     Dates: start: 20190111

REACTIONS (4)
  - Mastoiditis [Unknown]
  - Sinusitis [Unknown]
  - Cerebral ischaemia [Unknown]
  - Gastrointestinal disorder [Unknown]
